FAERS Safety Report 7808383-7 (Version None)
Quarter: 2011Q4

REPORT INFORMATION
  Report Type: 
  Country: None (occurrence: None)
  Receive Date: 20111011
  Receipt Date: 20111011
  Transmission Date: 20120403
  Serious: Yes (Hospitalization)
  Sender: FDA-Public Use
  Company Number: None

PATIENT
  Age: 24 Year
  Sex: Female

DRUGS (2)
  1. INCIVEK [Suspect]
     Dosage: 375 MG 2 TID ORAL
     Route: 048
     Dates: start: 20110718, end: 20111003
  2. PEGASYS [Suspect]
     Indication: HEPATITIS C
     Dosage: 180MCG QWEEK SC
     Route: 058
     Dates: start: 20110718, end: 20111003

REACTIONS (8)
  - LOSS OF CONSCIOUSNESS [None]
  - MENTAL DISORDER [None]
  - EPISTAXIS [None]
  - CONVULSION [None]
  - ANAEMIA [None]
  - PSYCHOTIC DISORDER [None]
  - MANIA [None]
  - BIPOLAR DISORDER [None]
